FAERS Safety Report 7336622-8 (Version None)
Quarter: 2011Q1

REPORT INFORMATION
  Report Type: 
  Country: None (occurrence: None)
  Receive Date: 20110307
  Receipt Date: 20110223
  Transmission Date: 20110831
  Serious: Yes (Hospitalization, Disabling, Other)
  Sender: FDA-Public Use
  Company Number: US-BAYER-2011-017907

PATIENT
  Sex: Female

DRUGS (1)
  1. AVELOX [Suspect]
     Indication: SINUSITIS
     Dosage: DAILY DOSE 400 MG
     Route: 048
     Dates: start: 20110220, end: 20110220

REACTIONS (8)
  - ASTHENIA [None]
  - EXTREMITY CONTRACTURE [None]
  - HYPOAESTHESIA [None]
  - LOSS OF CONSCIOUSNESS [None]
  - CEREBROVASCULAR ACCIDENT [None]
  - HYPOAESTHESIA FACIAL [None]
  - UNEVALUABLE EVENT [None]
  - NAUSEA [None]
